FAERS Safety Report 24542745 (Version 2)
Quarter: 2025Q1

REPORT INFORMATION
  Report Type: Spontaneous
  Country: US (occurrence: US)
  Receive Date: 20241024
  Receipt Date: 20250201
  Transmission Date: 20250409
  Serious: No
  Sender: GLENMARK
  Company Number: US-GLENMARK PHARMACEUTICALS-2024GMK094165

PATIENT

DRUGS (2)
  1. RYALTRIS [Suspect]
     Active Substance: MOMETASONE FUROATE MONOHYDRATE\OLOPATADINE HYDROCHLORIDE
     Indication: Seasonal allergy
     Dosage: 2 DOSAGE FORM, BID (2 SPRAYS IN EACH NOSTRIL TWICE DAILY)
     Route: 045
     Dates: start: 20240601, end: 20240916
  2. ZAFIRLUKAST [Concomitant]
     Active Substance: ZAFIRLUKAST
     Indication: Hypersensitivity
     Route: 065

REACTIONS (6)
  - Drug dose omission by device [Unknown]
  - Product communication issue [Unknown]
  - Device delivery system issue [Unknown]
  - Product container issue [Unknown]
  - Device issue [Unknown]
  - Product tampering [Unknown]

NARRATIVE: CASE EVENT DATE: 20240916
